FAERS Safety Report 26110060 (Version 2)
Quarter: 2025Q4

REPORT INFORMATION
  Report Type: Report from Study
  Country: EU (occurrence: EU)
  Receive Date: 20251201
  Receipt Date: 20251214
  Transmission Date: 20260118
  Serious: Yes (Hospitalization)
  Sender: ABBVIE
  Company Number: EU-ABBVIE-6300007

PATIENT
  Age: 75 Year
  Sex: Female

DRUGS (4)
  1. FOSCARBIDOPA\FOSLEVODOPA [Suspect]
     Active Substance: FOSCARBIDOPA\FOSLEVODOPA
     Indication: Parkinson^s disease
     Dosage: CRN: 0.35 ML/H; CR: 0.37 ML/H; CRH: 0.40 ML/H; ED: 0.30 ML
     Route: 058
     Dates: start: 20250306, end: 2025
  2. FOSCARBIDOPA\FOSLEVODOPA [Suspect]
     Active Substance: FOSCARBIDOPA\FOSLEVODOPA
     Dosage: CRL: 0.41 ML/H, CR: 0.42 ML/H, CRH: 0.43 ML/H, ED 0.25 ML
     Route: 058
     Dates: start: 2025, end: 2025
  3. FOSCARBIDOPA\FOSLEVODOPA [Suspect]
     Active Substance: FOSCARBIDOPA\FOSLEVODOPA
     Dosage: CRN 0.20 ML/H, CR 0.28 ML/H, CRH 0.33 ML/H, ED 0.15 ML
     Route: 058
     Dates: start: 2025
  4. FOSCARBIDOPA\FOSLEVODOPA [Suspect]
     Active Substance: FOSCARBIDOPA\FOSLEVODOPA
     Dosage: CRL: 0.41 ML/H, CR: 0.42 ML/H, CRH: 0.43 ML/H, ED 0.25 ML, CRM: SD: 0.2 ML;
     Route: 058
     Dates: start: 2025, end: 2025

REACTIONS (15)
  - Skin lesion [Not Recovered/Not Resolved]
  - On and off phenomenon [Recovered/Resolved]
  - Infusion site abscess [Recovering/Resolving]
  - Infusion site induration [Recovered/Resolved]
  - Infusion site nodule [Not Recovered/Not Resolved]
  - Asthenia [Not Recovered/Not Resolved]
  - Dyskinesia [Not Recovered/Not Resolved]
  - Infusion site pain [Not Recovered/Not Resolved]
  - Infusion site inflammation [Not Recovered/Not Resolved]
  - Infusion site erythema [Recovering/Resolving]
  - Infusion site discharge [Recovering/Resolving]
  - Infusion site mass [Unknown]
  - On and off phenomenon [Not Recovered/Not Resolved]
  - Infusion site haematoma [Not Recovered/Not Resolved]
  - Infusion site induration [Not Recovered/Not Resolved]

NARRATIVE: CASE EVENT DATE: 20250101
